FAERS Safety Report 7290071-X (Version None)
Quarter: 2011Q1

REPORT INFORMATION
  Report Type: 
  Country: None (occurrence: None)
  Receive Date: 20110214
  Receipt Date: 20100511
  Transmission Date: 20110831
  Serious: Yes (Hospitalization)
  Sender: FDA-Public Use
  Company Number: BR-SANOFI-AVENTIS-2010SA027837

PATIENT
  Age: 45 Year
  Sex: Female
  Weight: 63.4 kg

DRUGS (3)
  1. CLEXANE SYRINGES [Suspect]
     Indication: THROMBOSIS
     Route: 058
     Dates: start: 20100512
  2. WARFARIN SODIUM [Suspect]
     Indication: THROMBOSIS
     Route: 065
     Dates: start: 20101227, end: 20101227
  3. WARFARIN SODIUM [Concomitant]
     Dates: start: 20091101, end: 20100501

REACTIONS (5)
  - RENAL FAILURE [None]
  - DRUG EXPOSURE DURING PREGNANCY [None]
  - THROMBOSIS [None]
  - HAEMORRHAGE [None]
  - ANAEMIA [None]
